FAERS Safety Report 4825807-8 (Version None)
Quarter: 2005Q4

REPORT INFORMATION
  Report Type: 
  Country: None (occurrence: None)
  Receive Date: 20051111
  Receipt Date: 20051107
  Transmission Date: 20060501
  Serious: Yes (Death, Life-Threatening)
  Sender: FDA-Public Use
  Company Number: HCM-5654

PATIENT
  Age: 61 Year
  Sex: Male

DRUGS (4)
  1. TOPOTECAN [Suspect]
     Dosage: 1.5MG PER DAY
     Route: 042
     Dates: start: 20050822, end: 20050823
  2. PAMIDRONATE DISODIUM [Suspect]
     Dosage: 30MG PER DAY
     Route: 030
     Dates: start: 20050816, end: 20050816
  3. DEXAMETHASONE SODIUM PHOSPHATE [Suspect]
     Indication: PROPHYLAXIS
     Dosage: 4MG PER DAY
     Route: 042
     Dates: start: 20050822, end: 20050823
  4. GRANISETRON  HCL [Suspect]
     Indication: PROPHYLAXIS
     Dosage: 3MG PER DAY
     Route: 042
     Dates: start: 20050822, end: 20050823

REACTIONS (7)
  - CONDITION AGGRAVATED [None]
  - EATING DISORDER [None]
  - HYPOCHLORAEMIA [None]
  - HYPONATRAEMIA [None]
  - LIVER DISORDER [None]
  - PYREXIA [None]
  - SMALL CELL LUNG CANCER STAGE UNSPECIFIED [None]
